FAERS Safety Report 9210985 (Version 3)
Quarter: 2013Q4

REPORT INFORMATION
  Report Type: Report from Study
  Country: CA (occurrence: CA)
  Receive Date: 20130404
  Receipt Date: 20131216
  Transmission Date: 20140711
  Serious: Yes (Hospitalization)
  Sender: FDA-Public Use
  Company Number: CA-TEVA-396307USA

PATIENT
  Age: 56 Year
  Sex: Male
  Weight: 86.7 kg

DRUGS (5)
  1. BENDAMUSTINE [Suspect]
     Indication: CHRONIC LYMPHOCYTIC LEUKAEMIA
     Route: 042
  2. BENDAMUSTINE [Suspect]
     Route: 042
     Dates: start: 20130409
  3. RITUXIMAB [Suspect]
     Indication: CHRONIC LYMPHOCYTIC LEUKAEMIA
     Route: 042
  4. RITUXIMAB [Suspect]
     Route: 042
     Dates: start: 20130409
  5. IBRUTINIB/PLACEBO [Suspect]
     Indication: CHRONIC LYMPHOCYTIC LEUKAEMIA
     Dosage: IBRUTINIB VS PLACEBO
     Dates: start: 2013

REACTIONS (2)
  - Pleural effusion [Recovered/Resolved]
  - Hypoxia [Not Recovered/Not Resolved]
